FAERS Safety Report 8331659-4 (Version None)
Quarter: 2012Q2

REPORT INFORMATION
  Report Type: 
  Country: None (occurrence: None)
  Receive Date: 20120502
  Receipt Date: 20110405
  Transmission Date: 20120825
  Serious: No
  Sender: FDA-Public Use
  Company Number: US-ASTRAZENECA-2011SE19301

PATIENT
  Age: 31 Year
  Sex: Female
  Weight: 55.3 kg

DRUGS (2)
  1. CIMCIA [Concomitant]
  2. ENTOCORT EC [Suspect]
     Indication: CROHN'S DISEASE
     Route: 048

REACTIONS (1)
  - DYSGEUSIA [None]
